FAERS Safety Report 8217765-3 (Version None)
Quarter: 2012Q1

REPORT INFORMATION
  Report Type: 
  Country: None (occurrence: None)
  Receive Date: 20120319
  Receipt Date: 20120309
  Transmission Date: 20120608
  Serious: Yes (Other)
  Sender: FDA-Public Use
  Company Number: DE-JNJFOC-20120304879

PATIENT
  Sex: Male
  Weight: 117 kg

DRUGS (12)
  1. LEVOPROMAZIN [Suspect]
     Route: 048
     Dates: start: 20120309, end: 20120309
  2. DIAZEPAM [Suspect]
     Route: 048
     Dates: start: 20120309, end: 20120309
  3. HALDOL [Suspect]
     Indication: PRODUCT USED FOR UNKNOWN INDICATION
     Route: 048
     Dates: start: 20120309, end: 20120309
  4. LEVOPROMAZIN [Suspect]
     Indication: PRODUCT USED FOR UNKNOWN INDICATION
     Route: 048
  5. DIAZEPAM [Suspect]
     Indication: PRODUCT USED FOR UNKNOWN INDICATION
     Route: 048
  6. ALL OTHER THERAPEUTICS [Suspect]
     Route: 048
     Dates: start: 20120309, end: 20120309
  7. HALDOL [Suspect]
     Route: 048
  8. ZYPREXA [Suspect]
     Route: 048
     Dates: start: 20120309, end: 20120309
  9. ALL OTHER THERAPEUTICS [Suspect]
     Indication: PRODUCT USED FOR UNKNOWN INDICATION
     Route: 048
  10. ZYPREXA [Suspect]
     Indication: PRODUCT USED FOR UNKNOWN INDICATION
     Route: 048
  11. VALPROATE SODIUM [Suspect]
     Indication: PRODUCT USED FOR UNKNOWN INDICATION
     Route: 048
  12. VALPROATE SODIUM [Suspect]
     Route: 048
     Dates: start: 20120309, end: 20120309

REACTIONS (3)
  - INTENTIONAL DRUG MISUSE [None]
  - SUICIDE ATTEMPT [None]
  - SLUGGISHNESS [None]
